FAERS Safety Report 7478209-2 (Version None)
Quarter: 2011Q2

REPORT INFORMATION
  Report Type: 
  Country: None (occurrence: None)
  Receive Date: 20110513
  Receipt Date: 20110504
  Transmission Date: 20111010
  Serious: Yes (Hospitalization)
  Sender: FDA-Public Use
  Company Number: US-ASTRAZENECA-2010SE19786

PATIENT
  Age: 55 Year
  Sex: Female

DRUGS (2)
  1. ZOMIG [Suspect]
     Route: 048
  2. IMITREX [Concomitant]

REACTIONS (6)
  - MIGRAINE [None]
  - HEPATITIS C [None]
  - DRUG DOSE OMISSION [None]
  - HERPES ZOSTER [None]
  - HEADACHE [None]
  - LIVER TRANSPLANT [None]
